FAERS Safety Report 17880068 (Version 6)
Quarter: 2020Q4

REPORT INFORMATION
  Report Type: Report from Study
  Country: None (occurrence: IL)
  Receive Date: 20200610
  Receipt Date: 20201019
  Transmission Date: 20210113
  Serious: Yes (Death, Hospitalization, Other)
  Sender: FDA-Public Use
  Company Number: IL-ABBVIE-20K-082-3353252-00

PATIENT
  Age: 80 Year
  Sex: Male
  Weight: 44.8 kg

DRUGS (23)
  1. LOSEC [Concomitant]
     Active Substance: OMEPRAZOLE
     Indication: PROPHYLAXIS
     Dates: start: 20200327, end: 20200413
  2. TARGIN [Concomitant]
     Active Substance: NALOXONE HYDROCHLORIDE\OXYCODONE HYDROCHLORIDE
     Indication: ARTHRALGIA
     Dates: start: 20200325, end: 20200411
  3. VENETOCLAX. [Suspect]
     Active Substance: VENETOCLAX
     Indication: ACUTE MYELOID LEUKAEMIA
     Dosage: RAMP UP
     Route: 048
     Dates: start: 20200329, end: 20200329
  4. FUSID [Concomitant]
     Indication: PROPHYLAXIS
     Dates: start: 20200328, end: 20200412
  5. CALTRATE [Concomitant]
     Active Substance: CALCIUM CARBONATE
     Indication: HYPERPHOSPHATAEMIA
     Dates: start: 20200326, end: 20200413
  6. RENVELA [Concomitant]
     Active Substance: SEVELAMER CARBONATE
     Indication: PROPHYLAXIS
     Dates: start: 20200325
  7. AZACITIDINE. [Suspect]
     Active Substance: AZACITIDINE
     Dosage: CYCLE 3
     Route: 058
     Dates: start: 20200531
  8. POTASSIUM CHLORIDE. [Concomitant]
     Active Substance: POTASSIUM CHLORIDE
     Dates: start: 20200630, end: 20200705
  9. AZACITIDINE. [Suspect]
     Active Substance: AZACITIDINE
     Indication: ACUTE MYELOID LEUKAEMIA
     Dosage: CYCLE 1
     Route: 058
     Dates: start: 20200329, end: 20200404
  10. FORTUM [Concomitant]
     Active Substance: CEFTAZIDIME
     Indication: PYREXIA
     Dates: start: 20200512, end: 20200520
  11. FORTUM [Concomitant]
     Active Substance: CEFTAZIDIME
     Dates: start: 20200630, end: 20200630
  12. POTASSIUM CHLORIDE. [Concomitant]
     Active Substance: POTASSIUM CHLORIDE
     Indication: HYPOKALAEMIA
     Dates: start: 20200512, end: 20200520
  13. VENETOCLAX. [Suspect]
     Active Substance: VENETOCLAX
     Dosage: INTERRUPTION PER INVESTIGATOR DECISION DUE TO TLS
     Route: 048
     Dates: start: 20200330, end: 20200331
  14. AZACITIDINE. [Suspect]
     Active Substance: AZACITIDINE
     Dosage: CYCLE 2
     Route: 058
     Dates: start: 20200428, end: 20200504
  15. CLEXANE [Concomitant]
     Active Substance: ENOXAPARIN SODIUM
     Indication: PROPHYLAXIS
     Dates: start: 20200328, end: 20200407
  16. CIPRODEX [Concomitant]
     Active Substance: CIPROFLOXACIN HYDROCHLORIDE\DEXAMETHASONE
     Indication: PROPHYLAXIS
     Dates: start: 20200413, end: 20200413
  17. POTASSIUM CHLORIDE. [Concomitant]
     Active Substance: POTASSIUM CHLORIDE
     Dates: start: 20200607, end: 20200610
  18. SOPA-K [Concomitant]
     Indication: HYPOKALAEMIA
     Dates: start: 20200729, end: 20200803
  19. FORTUM [Concomitant]
     Active Substance: CEFTAZIDIME
     Dates: start: 20200607, end: 20200611
  20. VENETOCLAX. [Suspect]
     Active Substance: VENETOCLAX
     Dosage: RAMP UP
     Route: 048
     Dates: start: 20200404, end: 20200404
  21. VENETOCLAX. [Suspect]
     Active Substance: VENETOCLAX
     Route: 048
     Dates: start: 20200405, end: 2020
  22. AZENIL [Concomitant]
     Indication: PROPHYLAXIS
     Dates: start: 20200328, end: 20200402
  23. TAZOPIP [Concomitant]
     Active Substance: PIPERACETAZINE\TAZOBACTAM
     Indication: ANTIBIOTIC PROPHYLAXIS
     Dates: start: 20200325, end: 20200404

REACTIONS (18)
  - Platelet count decreased [Recovered/Resolved]
  - Neutrophil count decreased [Recovered/Resolved]
  - Febrile neutropenia [Recovered/Resolved]
  - Urinary tract infection [Recovered/Resolved]
  - Dehydration [Recovered/Resolved]
  - Tumour lysis syndrome [Recovered/Resolved]
  - Hypokalaemia [Recovered/Resolved]
  - Constipation [Recovered/Resolved]
  - Constipation [Recovered/Resolved]
  - Hypokalaemia [Recovered/Resolved]
  - Urinary tract obstruction [Recovered/Resolved]
  - Sepsis [Recovered/Resolved with Sequelae]
  - Pyrexia [Recovered/Resolved]
  - Pyrexia [Recovered/Resolved]
  - Acute myeloid leukaemia [Fatal]
  - Confusional state [Not Recovered/Not Resolved]
  - Hypokalaemia [Recovered/Resolved]
  - Pyrexia [Recovered/Resolved]

NARRATIVE: CASE EVENT DATE: 20200331
